FAERS Safety Report 8059758-5 (Version None)
Quarter: 2012Q1

REPORT INFORMATION
  Report Type: 
  Country: None (occurrence: None)
  Receive Date: 20120119
  Receipt Date: 20120119
  Transmission Date: 20120608
  Serious: Yes (Hospitalization)
  Sender: FDA-Public Use
  Company Number: None

PATIENT
  Age: 83 Year
  Sex: Male
  Weight: 68.2 kg

DRUGS (10)
  1. ALPHAGAN [Concomitant]
  2. CALCIUM + VIT D [Concomitant]
  3. POTASSIUM CHLORIDE [Concomitant]
  4. M.V.I. [Concomitant]
  5. LASIX [Concomitant]
  6. COUMADIN [Suspect]
     Indication: ATRIAL FIBRILLATION
     Dosage: 6MG DAILY PO CHRONIC W/ RECENT INCREASE
     Route: 048
  7. BONIVA [Concomitant]
  8. METFORMIN HYDROCHLORIDE [Concomitant]
  9. DIGOXIN [Concomitant]
  10. ALTACE [Concomitant]

REACTIONS (3)
  - FALL [None]
  - INTERNATIONAL NORMALISED RATIO DECREASED [None]
  - HAEMORRHAGE INTRACRANIAL [None]
